FAERS Safety Report 20994363 (Version 2)
Quarter: 2022Q2

REPORT INFORMATION
  Report Type: Spontaneous
  Country: JP (occurrence: JP)
  Receive Date: 20220622
  Receipt Date: 20220628
  Transmission Date: 20220721
  Serious: Yes (Hospitalization)
  Sender: FDA-Public Use
  Company Number: JP-UCBJ-CD202205809UCBPHAPROD

PATIENT
  Age: 82 Year
  Sex: Male

DRUGS (3)
  1. VIMPAT [Suspect]
     Active Substance: LACOSAMIDE
     Indication: Partial seizures
     Dosage: 100 MILLIGRAM, 2X/DAY (BID)
     Route: 048
  2. LEVETIRACETAM [Suspect]
     Active Substance: LEVETIRACETAM
     Indication: Partial seizures
     Dosage: 1000MG DAILY
     Route: 048
  3. FYCOMPA [Concomitant]
     Active Substance: PERAMPANEL
     Indication: Product used for unknown indication
     Dosage: 2 MILLIGRAM, ONCE DAILY (QD)
     Route: 048

REACTIONS (1)
  - Cognitive disorder [Unknown]
